FAERS Safety Report 5899311-2 (Version None)
Quarter: 2008Q3

REPORT INFORMATION
  Report Type: 
  Country: None (occurrence: None)
  Receive Date: 20080909
  Receipt Date: 20070816
  Transmission Date: 20090109
  Serious: Yes (Other)
  Sender: FDA-Public Use
  Company Number: HQWYE704621AUG07

PATIENT
  Age: 72 Year
  Sex: Female
  Weight: 99.88 kg

DRUGS (2)
  1. ADVIL MIGRAINE LIQUI-GELS [Suspect]
     Indication: ARTHRALGIA
     Dosage: 2 CAPSULES ONCE, ORAL
     Route: 048
     Dates: start: 20070801, end: 20070801
  2. SYNTHROID [Concomitant]

REACTIONS (1)
  - FEELING ABNORMAL [None]
